FAERS Safety Report 9013025 (Version 2)
Quarter: 2013Q1

REPORT INFORMATION
  Report Type: Spontaneous
  Country: None (occurrence: US)
  Receive Date: 20130114
  Receipt Date: 20130222
  Transmission Date: 20140127
  Serious: No
  Sender: FDA-Public Use
  Company Number: US-TEVA-376285USA

PATIENT
  Sex: Male

DRUGS (4)
  1. QNASL [Suspect]
     Indication: RHINITIS SEASONAL
     Dosage: QD
     Route: 045
     Dates: start: 20121204
  2. QNASL [Suspect]
     Indication: RHINITIS PERENNIAL
  3. FEXOFENADINE [Concomitant]
     Indication: HYPERSENSITIVITY
     Dosage: QD
     Route: 048
     Dates: start: 20121204
  4. OMEPRAZOLE [Concomitant]
     Indication: DYSPEPSIA
     Dosage: QD
     Route: 048

REACTIONS (2)
  - Palpitations [Recovered/Resolved with Sequelae]
  - Cough [Unknown]
